FAERS Safety Report 5213035-6 (Version None)
Quarter: 2007Q1

REPORT INFORMATION
  Report Type: 
  Country: None (occurrence: None)
  Receive Date: 20070119
  Receipt Date: 20070112
  Transmission Date: 20070707
  Serious: Yes (Hospitalization, Other)
  Sender: FDA-Public Use
  Company Number: US-BRISTOL-MYERS SQUIBB COMPANY-13515986

PATIENT
  Age: 47 Year
  Sex: Male

DRUGS (5)
  1. ARIPIPRAZOLE [Suspect]
     Indication: BIPOLAR I DISORDER
     Route: 048
     Dates: start: 20060911, end: 20060918
  2. PLACEBO [Suspect]
     Indication: BIPOLAR I DISORDER
     Route: 048
     Dates: start: 20060911, end: 20060918
  3. BUSPAR [Suspect]
  4. VICODIN [Concomitant]
     Dates: start: 20060904, end: 20060905
  5. ATIVAN [Concomitant]
     Dates: start: 20060907, end: 20060918

REACTIONS (1)
  - SUICIDE ATTEMPT [None]
